FAERS Safety Report 14288339 (Version 2)
Quarter: 2020Q3

REPORT INFORMATION
  Report Type: Report from Study
  Country: NL (occurrence: NL)
  Receive Date: 20171214
  Receipt Date: 20200709
  Transmission Date: 20201102
  Serious: Yes (Hospitalization)
  Sender: FDA-Public Use
  Company Number: NL-TEVA-2017-NL-833567

PATIENT
  Age: 55 Year
  Sex: Female

DRUGS (2)
  1. OXYCODON [Suspect]
     Active Substance: OXYCODONE
     Route: 065
  2. LONQUEX 6 MG, OPLOSSING VOOR INJECTIE [Suspect]
     Active Substance: LIPEGFILGRASTIM
     Route: 058
     Dates: start: 20171110

REACTIONS (2)
  - Fibromyalgia [Recovered/Resolved]
  - Pain [Recovered/Resolved]

NARRATIVE: CASE EVENT DATE: 20171110
